FAERS Safety Report 21279834 (Version 2)
Quarter: 2022Q3

REPORT INFORMATION
  Report Type: Report from Study
  Country: US (occurrence: US)
  Receive Date: 20220901
  Receipt Date: 20220912
  Transmission Date: 20221027
  Serious: Yes (Hospitalization, Other)
  Sender: FDA-Public Use
  Company Number: US-BRISTOL-MYERS SQUIBB COMPANY-2022-095386

PATIENT
  Age: 68 Year
  Sex: Female
  Weight: 64.0 kg

DRUGS (2)
  1. REVLIMID [Suspect]
     Active Substance: LENALIDOMIDE
     Indication: Plasma cell myeloma
     Dosage: FREQUENCY: 1 DAILY FOR 21 DAYS
     Route: 048
     Dates: start: 20220728
  2. REVLIMID [Suspect]
     Active Substance: LENALIDOMIDE
     Route: 065

REACTIONS (8)
  - Constipation [Recovered/Resolved]
  - Haematochezia [Recovered/Resolved]
  - Dyspnoea [Unknown]
  - Dizziness [Unknown]
  - Somnolence [Unknown]
  - Erythema [Unknown]
  - Fatigue [Unknown]
  - Pain in extremity [Unknown]

NARRATIVE: CASE EVENT DATE: 20220801
